FAERS Safety Report 7242800-9 (Version None)
Quarter: 2011Q1

REPORT INFORMATION
  Report Type: 
  Country: None (occurrence: None)
  Receive Date: 20110125
  Receipt Date: 20110112
  Transmission Date: 20110831
  Serious: Yes (Other)
  Sender: FDA-Public Use
  Company Number: US-TYCO HEALTHCARE/MALLINCKRODT-T201002432

PATIENT
  Sex: Female
  Weight: 94.785 kg

DRUGS (6)
  1. ZOCOR [Concomitant]
     Dosage: 20 MG, UNK
  2. TIAZAC                             /00489702/ [Concomitant]
     Dosage: UNK
  3. ANTIVERT                           /00007101/ [Concomitant]
     Dosage: 25 MG, UNK
  4. PENNSAID [Suspect]
     Indication: OSTEOARTHRITIS
     Route: 061
  5. MICARDIS HCT [Concomitant]
     Dosage: 80/20 MG
  6. DETROL LA [Concomitant]
     Dosage: UNK

REACTIONS (3)
  - PAIN [None]
  - ABASIA [None]
  - SWELLING [None]
